FAERS Safety Report 17407571 (Version 1)
Quarter: 2020Q1

REPORT INFORMATION
  Report Type: Report from Study
  Country: US (occurrence: US)
  Receive Date: 20200212
  Receipt Date: 20200212
  Transmission Date: 20200409
  Serious: Yes (Hospitalization, Other)
  Sender: FDA-Public Use
  Company Number: US-ROCHE-1487123

PATIENT
  Age: 67 Year
  Sex: Female
  Weight: 75 kg

DRUGS (19)
  1. ADVAIR HFA [Concomitant]
     Active Substance: FLUTICASONE PROPIONATE\SALMETEROL XINAFOATE
  2. LORAZEPAM. [Concomitant]
     Active Substance: LORAZEPAM
  3. PREDNISONE. [Concomitant]
     Active Substance: PREDNISONE
  4. TAMSULOSIN [Concomitant]
     Active Substance: TAMSULOSIN
  5. BEVACIZUMAB. [Suspect]
     Active Substance: BEVACIZUMAB
     Indication: EGFR GENE MUTATION
     Route: 042
     Dates: start: 20140917
  6. GABAPENTIN. [Concomitant]
     Active Substance: GABAPENTIN
  7. TRAMADOL. [Concomitant]
     Active Substance: TRAMADOL
  8. AMLODIPINE [Concomitant]
     Active Substance: AMLODIPINE BESYLATE
  9. ASPIRIN [ACETYLSALICYLIC ACID] [Concomitant]
     Active Substance: ASPIRIN
     Route: 065
  10. CARVIDOL [Concomitant]
  11. HYDRALAZINE [Concomitant]
     Active Substance: HYDRALAZINE HYDROCHLORIDE
  12. ERLOTINIB [Suspect]
     Active Substance: ERLOTINIB
     Dosage: CYCLE 2
     Route: 048
     Dates: start: 20141008
  13. LASIX [Concomitant]
     Active Substance: FUROSEMIDE
  14. CARVEDILOL. [Concomitant]
     Active Substance: CARVEDILOL
     Route: 065
  15. DOXYCYCLINE. [Concomitant]
     Active Substance: DOXYCYCLINE
  16. ERLOTINIB [Suspect]
     Active Substance: ERLOTINIB
     Indication: NON-SMALL CELL LUNG CANCER METASTATIC
     Dosage: CYCLE 1
     Route: 048
     Dates: start: 20140917, end: 20141002
  17. CLINDAMYCIN. [Concomitant]
     Active Substance: CLINDAMYCIN
     Route: 061
  18. GLIMEPIRIDE. [Concomitant]
     Active Substance: GLIMEPIRIDE
  19. INSULIN [Concomitant]
     Active Substance: INSULIN NOS

REACTIONS (5)
  - Dyspnoea [Recovering/Resolving]
  - Hyperglycaemia [Unknown]
  - Pleural effusion [Recovering/Resolving]
  - Renal failure [Unknown]
  - Fatigue [Unknown]

NARRATIVE: CASE EVENT DATE: 20141026
